FAERS Safety Report 16895944 (Version 1)
Quarter: 2019Q4

REPORT INFORMATION
  Report Type: Spontaneous
  Country: US (occurrence: US)
  Receive Date: 20191008
  Receipt Date: 20191008
  Transmission Date: 20200122
  Serious: No
  Sender: FDA-Public Use
  Company Number: US-PERRIGO-19US001578

PATIENT
  Age: 53 Year
  Sex: Female
  Weight: 54.42 kg

DRUGS (1)
  1. IMIQUIMOD. [Suspect]
     Active Substance: IMIQUIMOD
     Indication: BASAL CELL CARCINOMA
     Dosage: SMALL AMOUNT, QD
     Route: 061
     Dates: start: 20190107, end: 20190130

REACTIONS (4)
  - Lymphadenopathy [Not Recovered/Not Resolved]
  - Inappropriate schedule of product administration [Recovered/Resolved]
  - Product administered at inappropriate site [Recovered/Resolved]
  - Application site scab [Not Recovered/Not Resolved]

NARRATIVE: CASE EVENT DATE: 201901
